FAERS Safety Report 12148249 (Version 3)
Quarter: 2016Q3

REPORT INFORMATION
  Report Type: Spontaneous
  Country: FR (occurrence: FR)
  Receive Date: 20160304
  Receipt Date: 20160808
  Transmission Date: 20161109
  Serious: Yes (Death, Hospitalization, Other)
  Sender: FDA-Public Use
  Company Number: FR-ABBVIE-16P-056-1571977-00

PATIENT
  Age: 51 Year
  Sex: Male
  Weight: 45 kg

DRUGS (7)
  1. ISENTRESS [Suspect]
     Active Substance: RALTEGRAVIR POTASSIUM
     Indication: HIV INFECTION
     Route: 065
     Dates: start: 20151206, end: 20160106
  2. OXACILLINE [Concomitant]
     Active Substance: OXACILLIN SODIUM
     Indication: PRODUCT USED FOR UNKNOWN INDICATION
     Dates: start: 20151126, end: 20151224
  3. NORVIR [Suspect]
     Active Substance: RITONAVIR
     Indication: HIV INFECTION
     Route: 048
     Dates: start: 20151206, end: 20160106
  4. INTELENCE [Suspect]
     Active Substance: ETRAVIRINE
     Indication: HIV INFECTION
     Route: 048
     Dates: start: 20151206, end: 20160106
  5. SIGMACILLINA [Concomitant]
     Active Substance: PENICILLIN G BENZATHINE
     Indication: PRODUCT USED FOR UNKNOWN INDICATION
     Route: 050
     Dates: start: 20151106, end: 20151210
  6. DARUNAVIR [Suspect]
     Active Substance: DARUNAVIR
     Indication: HIV INFECTION
     Route: 048
     Dates: start: 20151206, end: 20160106
  7. WELLVONE [Suspect]
     Active Substance: ATOVAQUONE
     Indication: PRODUCT USED FOR UNKNOWN INDICATION
     Route: 048
     Dates: start: 20151120, end: 20160108

REACTIONS (16)
  - Sepsis [Unknown]
  - Rash [Unknown]
  - Skin exfoliation [Unknown]
  - Endocarditis [Unknown]
  - Face oedema [Unknown]
  - Oedema [Unknown]
  - Hypotension [Unknown]
  - Generalised oedema [Unknown]
  - Drug reaction with eosinophilia and systemic symptoms [Recovering/Resolving]
  - Dermatitis exfoliative [Unknown]
  - Pruritus [Unknown]
  - Rash [Unknown]
  - Coma [Fatal]
  - Cellulitis staphylococcal [Unknown]
  - Multiple organ dysfunction syndrome [Fatal]
  - Erythema [Recovered/Resolved]

NARRATIVE: CASE EVENT DATE: 20160104
